FAERS Safety Report 5535390-X (Version None)
Quarter: 2007Q4

REPORT INFORMATION
  Report Type: 
  Country: None (occurrence: None)
  Receive Date: 20071206
  Receipt Date: 20071128
  Transmission Date: 20080405
  Serious: Yes (Hospitalization)
  Sender: FDA-Public Use
  Company Number: US-PFIZER INC-2007094933

PATIENT
  Sex: Male
  Weight: 118.8 kg

DRUGS (8)
  1. SUTENT [Suspect]
     Route: 048
  2. MS CONTIN [Concomitant]
     Route: 048
  3. PROTONIX [Concomitant]
     Route: 048
  4. SYNTHROID [Concomitant]
     Route: 048
  5. HYZAAR [Concomitant]
     Dosage: TEXT:50/12.5
     Route: 048
  6. LASIX [Concomitant]
     Route: 048
  7. AMIODARONE HCL [Concomitant]
     Route: 048
  8. ZYRTEC [Concomitant]
     Route: 048

REACTIONS (1)
  - CHEST PAIN [None]
